FAERS Safety Report 5379908-9 (Version None)
Quarter: 2007Q3

REPORT INFORMATION
  Report Type: 
  Country: None (occurrence: None)
  Receive Date: 20070706
  Receipt Date: 20070702
  Transmission Date: 20080115
  Serious: Yes (Hospitalization, Other)
  Sender: FDA-Public Use
  Company Number: PHNU2007DE02350

PATIENT
  Age: 9 Week
  Sex: Female

DRUGS (4)
  1. OXCARBAZEPINE [Suspect]
     Route: 064
  2. EUTHYROX [Concomitant]
     Route: 064
  3. FOLIC ACID [Concomitant]
     Route: 064
  4. IODINE [Concomitant]
     Route: 064

REACTIONS (5)
  - DRUG EXPOSURE DURING PREGNANCY [None]
  - INFECTIOUS MONONUCLEOSIS [None]
  - MENINGITIS [None]
  - URINARY TRACT INFECTION [None]
  - VESICOURETERIC REFLUX [None]
